FAERS Safety Report 25051827 (Version 1)
Quarter: 2025Q1

REPORT INFORMATION
  Report Type: Spontaneous
  Country: FI (occurrence: FI)
  Receive Date: 20250307
  Receipt Date: 20250307
  Transmission Date: 20250408
  Serious: Yes (Hospitalization)
  Sender: TAKEDA
  Company Number: None

PATIENT
  Age: 35 Year
  Sex: Female

DRUGS (1)
  1. LISDEXAMFETAMINE DIMESYLATE [Suspect]
     Active Substance: LISDEXAMFETAMINE DIMESYLATE
     Indication: Attention deficit hyperactivity disorder
     Dosage: 50 MILLIGRAM, QD
     Dates: start: 20241114, end: 20250216

REACTIONS (3)
  - Therapy cessation [Recovering/Resolving]
  - Psychotic disorder [Recovering/Resolving]
  - Self-destructive behaviour [Recovering/Resolving]

NARRATIVE: CASE EVENT DATE: 20250201
